FAERS Safety Report 24912579 (Version 1)
Quarter: 2025Q1

REPORT INFORMATION
  Report Type: Spontaneous
  Country: FR (occurrence: FR)
  Receive Date: 20250131
  Receipt Date: 20250131
  Transmission Date: 20250408
  Serious: Yes (Other)
  Sender: ELI LILLY AND COMPANY
  Company Number: FR-Merck Healthcare KGaA-2025004355

PATIENT
  Age: 84 Year
  Sex: Male

DRUGS (8)
  1. ERBITUX [Suspect]
     Active Substance: CETUXIMAB
     Indication: Colon cancer metastatic
     Dosage: 1 DOSAGE FORM, 2/M
     Route: 065
     Dates: start: 202002, end: 202006
  2. ERBITUX [Suspect]
     Active Substance: CETUXIMAB
     Route: 065
     Dates: start: 202010
  3. IRINOTECAN [Concomitant]
     Active Substance: IRINOTECAN
     Indication: Colon cancer metastatic
     Dates: start: 202002, end: 202006
  4. IRINOTECAN [Concomitant]
     Active Substance: IRINOTECAN
     Dates: start: 202010
  5. FLUOROURACIL [Concomitant]
     Active Substance: FLUOROURACIL
     Indication: Colon cancer metastatic
     Dates: start: 202002, end: 202006
  6. FLUOROURACIL [Concomitant]
     Active Substance: FLUOROURACIL
     Dates: start: 202010
  7. LEUCOVORIN [Concomitant]
     Active Substance: LEUCOVORIN\LEUCOVORIN CALCIUM
     Indication: Colon cancer metastatic
     Dates: start: 202002, end: 202006
  8. LEUCOVORIN [Concomitant]
     Active Substance: LEUCOVORIN\LEUCOVORIN CALCIUM
     Dates: start: 202010

REACTIONS (3)
  - Extremity necrosis [Unknown]
  - Impaired healing [Unknown]
  - Off label use [Unknown]

NARRATIVE: CASE EVENT DATE: 20210801
